FAERS Safety Report 25672961 (Version 1)
Quarter: 2025Q3

REPORT INFORMATION
  Report Type: Spontaneous
  Country: US (occurrence: US)
  Receive Date: 20250812
  Receipt Date: 20250812
  Transmission Date: 20251020
  Serious: No
  Sender: ALKERMES
  Company Number: US-ALKERMES INC.-ALK-2025-002128

PATIENT
  Sex: Male

DRUGS (1)
  1. VIVITROL [Suspect]
     Active Substance: NALTREXONE
     Indication: Dependence
     Route: 030

REACTIONS (5)
  - Product administered at inappropriate site [Unknown]
  - Injection site pain [Unknown]
  - Injection site swelling [Unknown]
  - Injection site mass [Unknown]
  - Injection site abscess [Unknown]
